FAERS Safety Report 10676636 (Version 1)
Quarter: 2014Q4

REPORT INFORMATION
  Report Type: Spontaneous
  Country: US (occurrence: None)
  Receive Date: 20141223
  Receipt Date: 20141223
  Transmission Date: 20150529
  Serious: Yes (Disabling, Other)
  Sender: FDA-Public Use
  Company Number: None

PATIENT
  Age: 26 Year
  Sex: Female
  Weight: 65.77 kg

DRUGS (2)
  1. HALDOL [Suspect]
     Active Substance: HALOPERIDOL
     Indication: MOOD SWINGS
     Dosage: 2 PILLS AND INJECTION MUSC.
     Route: 048
     Dates: start: 20141218, end: 20141222
  2. HALDOL [Suspect]
     Active Substance: HALOPERIDOL
     Indication: ATTENTION DEFICIT/HYPERACTIVITY DISORDER
     Dosage: 2 PILLS AND INJECTION MUSC.
     Route: 048
     Dates: start: 20141218, end: 20141222

REACTIONS (8)
  - Weight increased [None]
  - General symptom [None]
  - Metabolic syndrome [None]
  - Activities of daily living impaired [None]
  - Somnolence [None]
  - Dysphagia [None]
  - Musculoskeletal stiffness [None]
  - Myalgia [None]

NARRATIVE: CASE EVENT DATE: 20141222
